FAERS Safety Report 15724911 (Version 2)
Quarter: 2018Q4

REPORT INFORMATION
  Report Type: Spontaneous
  Country: US (occurrence: US)
  Receive Date: 20181214
  Receipt Date: 20181231
  Transmission Date: 20190205
  Serious: Yes (Other)
  Sender: FDA-Public Use
  Company Number: US-TEVA-2018-US-986051

PATIENT
  Sex: Female

DRUGS (2)
  1. AMLODIPINE, VALSARTAN, AND HYDROCHLOROTHIAZIDE TABLETS TEVA [Suspect]
     Active Substance: AMLODIPINE BESYLATE\HYDROCHLOROTHIAZIDE\VALSARTAN
     Indication: CARDIAC DISORDER
  2. AMLODIPINE, VALSARTAN, AND HYDROCHLOROTHIAZIDE TABLETS TEVA [Suspect]
     Active Substance: AMLODIPINE BESYLATE\HYDROCHLOROTHIAZIDE\VALSARTAN
     Indication: BLOOD PRESSURE ABNORMAL
     Dosage: DOSE STRENGTH: 5 MG/160 MG/12.5 MG
     Route: 065
     Dates: start: 2003

REACTIONS (2)
  - Recalled product administered [Unknown]
  - Bladder cancer [Unknown]

NARRATIVE: CASE EVENT DATE: 2011
